FAERS Safety Report 17427232 (Version 3)
Quarter: 2020Q1

REPORT INFORMATION
  Report Type: Report from Study
  Country: DE (occurrence: DE)
  Receive Date: 20200217
  Receipt Date: 20200330
  Transmission Date: 20200409
  Serious: Yes (Hospitalization)
  Sender: FDA-Public Use
  Company Number: DE-MYLANLABS-2020M1006685

PATIENT
  Age: 69 Year
  Sex: Female
  Weight: 77.7 kg

DRUGS (2)
  1. FULVESTRANT. [Suspect]
     Active Substance: FULVESTRANT
     Indication: BREAST CANCER METASTATIC
     Dosage: 500 MG, QD (EVERY FOUR WEEKS)
     Route: 030
     Dates: start: 20190304
  2. KISQALI [Suspect]
     Active Substance: RIBOCICLIB
     Indication: BREAST CANCER METASTATIC
     Dosage: 600 MG,QD(SCHEMA 21 DAYS INTAKE,THAN 7 DAYS PAUSE)
     Route: 048
     Dates: start: 20190304

REACTIONS (3)
  - Dermatosis [Recovered/Resolved]
  - Infection [Not Recovered/Not Resolved]
  - Wound dehiscence [Recovering/Resolving]

NARRATIVE: CASE EVENT DATE: 201910
